FAERS Safety Report 5291979-7 (Version None)
Quarter: 2007Q2

REPORT INFORMATION
  Report Type: 
  Country: None (occurrence: None)
  Receive Date: 20070406
  Receipt Date: 20070406
  Transmission Date: 20071010
  Serious: Yes (Hospitalization)
  Sender: FDA-Public Use
  Company Number: None

PATIENT
  Age: 78 Year
  Sex: Female
  Weight: 49.09 kg

DRUGS (2)
  1. GEMCITABINE HCL [Suspect]
     Indication: PANCREATIC CARCINOMA
     Dosage: 1GM/M2 = 1.47 G QWK X 3 IV
     Route: 042
     Dates: start: 20070322, end: 20070329
  2. LAPATINIB [Suspect]
     Indication: PANCREATIC CARCINOMA
     Dosage: 1500 MG QDAY PO
     Route: 048
     Dates: start: 20070322, end: 20070329

REACTIONS (10)
  - ANAEMIA [None]
  - ASTHENIA [None]
  - DEHYDRATION [None]
  - DIARRHOEA [None]
  - HAEMATEMESIS [None]
  - HYPOKALAEMIA [None]
  - NAUSEA [None]
  - NEUTROPENIA [None]
  - RASH MACULAR [None]
  - VOMITING [None]
